FAERS Safety Report 9727637 (Version 2)
Quarter: 2014Q1

REPORT INFORMATION
  Report Type: Spontaneous
  Country: JP (occurrence: JP)
  Receive Date: 20131203
  Receipt Date: 20140101
  Transmission Date: 20141002
  Serious: Yes (Hospitalization)
  Sender: FDA-Public Use
  Company Number: PHHY2013JP140651

PATIENT
  Age: 79 Year
  Sex: Female

DRUGS (5)
  1. EXELON PATCH [Suspect]
     Indication: DEMENTIA ALZHEIMER^S TYPE
     Dosage: 18 MG, DAILY
     Route: 062
  2. EXELON PATCH [Suspect]
     Dosage: 9 MG (USED EXELON DIVIDING 18 MG PATCH IN HALVES), UNK
     Route: 062
  3. EXELON PATCH [Suspect]
     Dosage: 18 MG, DAILY
     Route: 062
  4. HOKUNALIN [Concomitant]
     Route: 062
  5. AMLODIPINE [Concomitant]
     Route: 048

REACTIONS (4)
  - Thoracic vertebral fracture [Recovering/Resolving]
  - Compression fracture [Recovering/Resolving]
  - Fall [Recovering/Resolving]
  - Wrong technique in drug usage process [Unknown]
